FAERS Safety Report 15689875 (Version 2)
Quarter: 2018Q4

REPORT INFORMATION
  Report Type: Spontaneous
  Country: HU (occurrence: HU)
  Receive Date: 20181205
  Receipt Date: 20181221
  Transmission Date: 20190205
  Serious: Yes (Other)
  Sender: FDA-Public Use
  Company Number: HU-UCBSA-2018043262

PATIENT
  Age: 30 Year
  Sex: Female
  Weight: 66 kg

DRUGS (2)
  1. CIMZIA [Suspect]
     Active Substance: CERTOLIZUMAB PEGOL
     Indication: RHEUMATOID ARTHRITIS
     Dosage: 400 MG, EV 2 WEEKS(QOW)
     Route: 058
     Dates: start: 20180905, end: 201810
  2. CIMZIA [Suspect]
     Active Substance: CERTOLIZUMAB PEGOL
     Dosage: 200 MG, EV 2 WEEKS(QOW)
     Route: 058
     Dates: start: 201810

REACTIONS (4)
  - Breech presentation [Recovered/Resolved]
  - Exposure during pregnancy [Unknown]
  - Placental disorder [Recovered/Resolved]
  - Breast feeding [Unknown]

NARRATIVE: CASE EVENT DATE: 2018
